FAERS Safety Report 8844869 (Version 2)
Quarter: 2013Q4

REPORT INFORMATION
  Report Type: Spontaneous
  Country: CA (occurrence: CA)
  Receive Date: 20121017
  Receipt Date: 20131223
  Transmission Date: 20140711
  Serious: Yes (Other)
  Sender: FDA-Public Use
  Company Number: CA-ELI_LILLY_AND_COMPANY-CA201210002035

PATIENT
  Age: 13 Year
  Sex: Male
  Weight: 54 kg

DRUGS (2)
  1. STRATTERA [Suspect]
     Indication: ATTENTION DEFICIT/HYPERACTIVITY DISORDER
     Dosage: 40 MG, UNKNOWN
     Route: 048
     Dates: start: 200904, end: 201107
  2. STRATTERA [Suspect]
     Indication: ANXIETY
     Dosage: 60 MG, UNKNOWN
     Route: 048
     Dates: start: 201107, end: 201201

REACTIONS (3)
  - Depression [Recovered/Resolved]
  - Self injurious behaviour [Recovered/Resolved]
  - Suicidal ideation [Recovered/Resolved]
